FAERS Safety Report 5659985-8 (Version None)
Quarter: 2008Q1

REPORT INFORMATION
  Report Type: 
  Country: None (occurrence: None)
  Receive Date: 20080310
  Receipt Date: 20080226
  Transmission Date: 20080703
  Serious: No
  Sender: FDA-Public Use
  Company Number: APP200800131

PATIENT
  Age: 29 Year
  Sex: Female
  Weight: 73.0291 kg

DRUGS (1)
  1. HEPARIN SODIUM INJECTION [Suspect]
     Indication: THROMBOSIS PROPHYLAXIS
     Dosage: 10000 USP UNITS (5000 USP UNITS, 2IN 1 D), SUBCUTANEOUS
     Route: 058
     Dates: start: 20080219

REACTIONS (3)
  - CRYING [None]
  - INJECTION SITE BRUISING [None]
  - INJECTION SITE PAIN [None]
